FAERS Safety Report 8340821-6 (Version None)
Quarter: 2012Q2

REPORT INFORMATION
  Report Type: 
  Country: None (occurrence: None)
  Receive Date: 20120507
  Receipt Date: 20120425
  Transmission Date: 20120825
  Serious: Yes (Hospitalization)
  Sender: FDA-Public Use
  Company Number: JP-ROCHE-1059014

PATIENT
  Sex: Male
  Weight: 44 kg

DRUGS (5)
  1. AVASTIN [Suspect]
     Indication: COLON CANCER METASTATIC
     Route: 041
     Dates: start: 20120111, end: 20120307
  2. DEXAMETHASONE SODIUM PHOSPHATE [Concomitant]
     Indication: PROPHYLAXIS OF NAUSEA AND VOMITING
     Route: 041
     Dates: start: 20120111, end: 20120307
  3. TS-1 [Suspect]
     Indication: COLON CANCER METASTATIC
     Dosage: IT IS TWO ADMINISTERING WEEKLY HOLIDAY MEDICINE FOR TWO WEEKS.
     Route: 048
     Dates: start: 20120111, end: 20120320
  4. IRINOTECAN HCL [Suspect]
     Indication: COLON CANCER METASTATIC
     Route: 041
     Dates: start: 20120111, end: 20120307
  5. ALOXI [Concomitant]
     Indication: PROPHYLAXIS OF NAUSEA AND VOMITING
     Route: 041
     Dates: start: 20120111, end: 20120307

REACTIONS (2)
  - RESPIRATORY FAILURE [None]
  - INTERSTITIAL LUNG DISEASE [None]
